FAERS Safety Report 9068888 (Version 2)
Quarter: 2013Q3

REPORT INFORMATION
  Report Type: Report from Study
  Country: US (occurrence: US)
  Receive Date: 20130215
  Receipt Date: 20130829
  Transmission Date: 20140515
  Serious: Yes (Other)
  Sender: FDA-Public Use
  Company Number: US-ELI_LILLY_AND_COMPANY-US201205003782

PATIENT
  Age: 80 Year
  Sex: Female

DRUGS (3)
  1. TERIPARATIDE [Suspect]
     Indication: OSTEOPOROSIS
     Dosage: 20 UG, QD
  2. TERIPARATIDE [Suspect]
     Dosage: UNK, QD
     Dates: start: 201204
  3. SINEMET [Concomitant]

REACTIONS (12)
  - Hiatus hernia [Unknown]
  - Foot fracture [Recovered/Resolved]
  - Gastrooesophageal reflux disease [Unknown]
  - Injection site bruising [Unknown]
  - Drug dose omission [Unknown]
  - Dysphonia [Unknown]
  - Gait disturbance [Unknown]
  - Abasia [Unknown]
  - Cystitis [Unknown]
  - Back pain [Unknown]
  - Dysstasia [Unknown]
  - Muscle spasms [Unknown]
